FAERS Safety Report 5499561-3 (Version None)
Quarter: 2007Q4

REPORT INFORMATION
  Report Type: 
  Country: None (occurrence: None)
  Receive Date: 20071026
  Receipt Date: 20071016
  Transmission Date: 20080405
  Serious: Yes (Other)
  Sender: FDA-Public Use
  Company Number: US-ELI_LILLY_AND_COMPANY-US200709002731

PATIENT
  Sex: Male
  Weight: 187 kg

DRUGS (3)
  1. HUMULIN N [Suspect]
     Indication: TYPE 1 DIABETES MELLITUS
     Dosage: 24 U, EACH MORNING
     Dates: start: 20020506
  2. HUMULIN N [Suspect]
     Dosage: 20 U, EACH EVENING
     Dates: start: 20020723
  3. HUMULIN N [Suspect]

REACTIONS (3)
  - BLINDNESS [None]
  - DYSGEUSIA [None]
  - RENAL FAILURE [None]
